FAERS Safety Report 17190631 (Version 1)
Quarter: 2019Q4

REPORT INFORMATION
  Report Type: Spontaneous
  Country: US (occurrence: US)
  Receive Date: 20191223
  Receipt Date: 20191223
  Transmission Date: 20200122
  Serious: No
  Sender: FDA-Public Use
  Company Number: US-BAYER-2019-233014

PATIENT
  Age: 87 Year
  Sex: Male

DRUGS (1)
  1. MIRALAX [Suspect]
     Active Substance: POLYETHYLENE GLYCOL 3350
     Indication: GASTROINTESTINAL DISORDER
     Dosage: 17G IN 4-8 OUNCES OF BEVERAGE DAILY
     Route: 048
     Dates: end: 20191218

REACTIONS (3)
  - Prescribed underdose [Unknown]
  - Flatulence [Unknown]
  - Incorrect dose administered [Unknown]
